FAERS Safety Report 25633309 (Version 1)
Quarter: 2025Q3

REPORT INFORMATION
  Report Type: Spontaneous
  Country: US (occurrence: None)
  Receive Date: 20250731
  Receipt Date: 20250731
  Transmission Date: 20251020
  Serious: Yes (Life-Threatening, Hospitalization)
  Sender: FDA-CTU
  Company Number: None

PATIENT
  Age: 56 Year
  Sex: Male
  Weight: 99 kg

DRUGS (6)
  1. ZYVOX [Suspect]
     Active Substance: LINEZOLID
     Indication: Postoperative care
     Dates: start: 20250726, end: 20250727
  2. FLUOXETINE [Suspect]
     Active Substance: FLUOXETINE HYDROCHLORIDE
     Indication: Drug therapy
     Dates: end: 20250727
  3. DILTIAZEM [Concomitant]
     Active Substance: DILTIAZEM
  4. FLUOXETINE [Concomitant]
     Active Substance: FLUOXETINE HYDROCHLORIDE
  5. LISINOPRIL [Concomitant]
     Active Substance: LISINOPRIL
  6. HYDROCHLOROTHIAZIDE [Concomitant]
     Active Substance: HYDROCHLOROTHIAZIDE

REACTIONS (15)
  - Intestinal perforation [None]
  - Diverticulitis [None]
  - Incision site pain [None]
  - Drug interaction [None]
  - Hallucination, visual [None]
  - Hallucination, auditory [None]
  - Unresponsive to stimuli [None]
  - Staphylococcal sepsis [None]
  - Delusion [None]
  - Insomnia [None]
  - Hyperhidrosis [None]
  - Muscle twitching [None]
  - Tremor [None]
  - Speech disorder [None]
  - Agitation [None]

NARRATIVE: CASE EVENT DATE: 20250726
